FAERS Safety Report 9306540 (Version 2)
Quarter: 2013Q2

REPORT INFORMATION
  Report Type: Spontaneous
  Country: PL (occurrence: PL)
  Receive Date: 20130523
  Receipt Date: 20130627
  Transmission Date: 20140414
  Serious: Yes (Other)
  Sender: FDA-Public Use
  Company Number: PL-ABBOTT-13P-129-1089394-00

PATIENT
  Sex: Male
  Weight: 60 kg

DRUGS (9)
  1. ADALIMUMAB [Suspect]
     Indication: CROHN^S DISEASE
     Route: 058
     Dates: start: 20100216
  2. ADALIMUMAB [Suspect]
  3. ADALIMUMAB [Suspect]
     Dates: end: 201103
  4. MESALAZYNA [Concomitant]
     Indication: PRODUCT USED FOR UNKNOWN INDICATION
  5. AZATIOPRYNA [Concomitant]
     Indication: PRODUCT USED FOR UNKNOWN INDICATION
  6. VITAMIN D3 [Concomitant]
     Indication: OSTEOPENIA
  7. CALCIUM [Concomitant]
     Indication: OSTEOPENIA
  8. CONCOR COR [Concomitant]
     Indication: ARRHYTHMIA
  9. CONCOR COR [Concomitant]
     Indication: PROPHYLAXIS

REACTIONS (1)
  - Ventricular extrasystoles [Recovered/Resolved]
